FAERS Safety Report 26144032 (Version 1)
Quarter: 2025Q4

REPORT INFORMATION
  Report Type: Spontaneous
  Country: EU (occurrence: EU)
  Receive Date: 20251211
  Receipt Date: 20251211
  Transmission Date: 20260117
  Serious: Yes (Hospitalization)
  Sender: SANOFI AVENTIS
  Company Number: None

PATIENT
  Age: 64 Year
  Sex: Male

DRUGS (2)
  1. PYRAZINAMIDE [Suspect]
     Active Substance: PYRAZINAMIDE
     Indication: Pulmonary tuberculosis
     Dosage: 1500 MG, QD
     Route: 048
     Dates: start: 20120207
  2. RIFADIN [Suspect]
     Active Substance: RIFAMPIN
     Dosage: 1200 MG, QD
     Route: 048
     Dates: start: 20120207

REACTIONS (2)
  - Arthralgia [Not Recovered/Not Resolved]
  - Hyperuricaemia [Not Recovered/Not Resolved]

NARRATIVE: CASE EVENT DATE: 20120220
